FAERS Safety Report 5491545-4 (Version None)
Quarter: 2007Q4

REPORT INFORMATION
  Report Type: 
  Country: None (occurrence: None)
  Receive Date: 20071022
  Receipt Date: 20071016
  Transmission Date: 20080405
  Serious: Yes (Death, Other)
  Sender: FDA-Public Use
  Company Number: PHHO2007AR17135

PATIENT
  Age: 79 Year
  Sex: Male

DRUGS (1)
  1. DIOVAN [Suspect]
     Indication: HYPERTENSION
     Dosage: 160 MG, QD
     Dates: start: 20050101

REACTIONS (4)
  - DEATH [None]
  - LUNG NEOPLASM MALIGNANT [None]
  - PNEUMONIA [None]
  - RENAL DISORDER [None]
